FAERS Safety Report 17141163 (Version 6)
Quarter: 2020Q3

REPORT INFORMATION
  Report Type: Other
  Country: DE (occurrence: DE)
  Receive Date: 20191211
  Receipt Date: 20200805
  Transmission Date: 20201102
  Serious: Yes (Hospitalization, Other)
  Sender: FDA-Public Use
  Company Number: DE-ROCHE-2484360

PATIENT
  Age: 79 Year
  Sex: Female

DRUGS (9)
  1. ARTHROTEC FORTE [Concomitant]
     Active Substance: DICLOFENAC SODIUM\MISOPROSTOL
  2. TARGIN [Concomitant]
     Active Substance: NALOXONE HYDROCHLORIDE\OXYCODONE HYDROCHLORIDE
  3. OCREVUS [Suspect]
     Active Substance: OCRELIZUMAB
     Indication: SECONDARY PROGRESSIVE MULTIPLE SCLEROSIS
     Route: 042
     Dates: start: 20191106
  4. CARMEN (GERMANY) [Concomitant]
     Active Substance: LERCANIDIPINE HYDROCHLORIDE
  5. PROLIA [Suspect]
     Active Substance: DENOSUMAB
     Indication: PRODUCT USED FOR UNKNOWN INDICATION
     Route: 065
  6. ATENOLOL. [Concomitant]
     Active Substance: ATENOLOL
  7. METOPROLOL. [Concomitant]
     Active Substance: METOPROLOL
  8. OCREVUS [Suspect]
     Active Substance: OCRELIZUMAB
     Indication: PROGRESSIVE RELAPSING MULTIPLE SCLEROSIS
     Route: 042
     Dates: start: 20191024
  9. CORTISONE [Concomitant]
     Active Substance: CORTISONE

REACTIONS (12)
  - Muscle spasms [Recovered/Resolved]
  - Diarrhoea [Recovered/Resolved]
  - Blood test abnormal [Not Recovered/Not Resolved]
  - Incontinence [Recovering/Resolving]
  - Gait disturbance [Recovered/Resolved]
  - Blood pressure increased [Not Recovered/Not Resolved]
  - Drug ineffective [Unknown]
  - Nasal congestion [Recovered/Resolved]
  - Cough [Recovered/Resolved]
  - Oral herpes [Recovered/Resolved]
  - Skin abrasion [Not Recovered/Not Resolved]
  - Fall [Unknown]

NARRATIVE: CASE EVENT DATE: 20191024
